FAERS Safety Report 8168035-3 (Version None)
Quarter: 2012Q1

REPORT INFORMATION
  Report Type: 
  Country: None (occurrence: None)
  Receive Date: 20120227
  Receipt Date: 20120215
  Transmission Date: 20120608
  Serious: Yes (Other)
  Sender: FDA-Public Use
  Company Number: PHFR2011GB007250

PATIENT
  Sex: Male

DRUGS (7)
  1. CLONAZEPAM [Concomitant]
     Indication: OBSESSIVE-COMPULSIVE DISORDER
     Dosage: 1 MG, DAILY
     Route: 048
  2. CLOZARIL [Suspect]
     Indication: SCHIZOPHRENIA
     Dosage: 600 MG
     Route: 048
     Dates: start: 20110721
  3. CLOZARIL [Suspect]
     Dosage: 500 MG
     Route: 048
     Dates: end: 20120215
  4. CLOMIPRAMINE HCL [Concomitant]
     Indication: SOCIAL PHOBIA
     Dosage: 225 MG, DAILY
     Route: 048
  5. IBUPROFEN [Concomitant]
     Indication: PAIN
     Dosage: 1200 MG, DAILY
     Route: 048
  6. CLOMIPRAMINE HCL [Concomitant]
     Indication: OBSESSIVE-COMPULSIVE DISORDER
  7. CLONAZEPAM [Concomitant]
     Indication: SOCIAL PHOBIA

REACTIONS (9)
  - DYSGEUSIA [None]
  - CONVULSION [None]
  - ASTHENIA [None]
  - DRUG INEFFECTIVE [None]
  - LIMB DISCOMFORT [None]
  - OBSESSIVE-COMPULSIVE DISORDER [None]
  - TACHYCARDIA [None]
  - PAROSMIA [None]
  - DYSKINESIA [None]
